FAERS Safety Report 6645202-9 (Version None)
Quarter: 2010Q1

REPORT INFORMATION
  Report Type: 
  Country: None (occurrence: None)
  Receive Date: 20100322
  Receipt Date: 20080226
  Transmission Date: 20100710
  Serious: Yes (Hospitalization, Disabling)
  Sender: FDA-Public Use
  Company Number: IL-SANOFI-AVENTIS-F01200700220

PATIENT
  Age: 70 Year
  Sex: Male
  Weight: 84 kg

DRUGS (7)
  1. LEUPRORELIN ACETATE [Suspect]
     Indication: PROSTATE CANCER
     Dosage: UNIT DOSE: 22.5 MG
     Route: 058
     Dates: start: 20070115, end: 20070115
  2. TAXOTERE [Suspect]
     Indication: PROSTATE CANCER
     Dosage: UNIT DOSE: 75 MG/M2
     Route: 042
     Dates: start: 20070207, end: 20070207
  3. ENALAPRIL MALEATE [Concomitant]
     Dosage: DOSE TEXT: 20 MG DAILY BY MOUTH
     Route: 048
     Dates: end: 20070225
  4. SIMVASTATIN [Concomitant]
     Dosage: DOSE TEXT: 20 MG DAILY BY MOUTH
     Route: 048
  5. GASTRO [Concomitant]
     Dosage: DOSE TEXT: 20 MG BY MOUTH DAILY
     Route: 048
  6. CITALOPRAM HYDROBROMIDE [Concomitant]
     Dosage: DOSE TEXT: 10 MG BY MOUTH
     Route: 048
     Dates: start: 20070225
  7. NORMITEN [Concomitant]
     Dosage: DOSE TEXT: 125 MG BY MOUTH
     Route: 048
     Dates: start: 20070225

REACTIONS (3)
  - DIARRHOEA [None]
  - FEBRILE NEUTROPENIA [None]
  - PYREXIA [None]
